FAERS Safety Report 23577253 (Version 1)
Quarter: 2024Q1

REPORT INFORMATION
  Report Type: Spontaneous
  Country: GB (occurrence: GB)
  Receive Date: 20240228
  Receipt Date: 20240228
  Transmission Date: 20240409
  Serious: Yes (Other)
  Sender: FDA-Public Use
  Company Number: None

PATIENT
  Age: 11 Year
  Sex: Female
  Weight: 43 kg

DRUGS (9)
  1. ELEXACAFTOR\IVACAFTOR\TEZACAFTOR [Suspect]
     Active Substance: ELEXACAFTOR\IVACAFTOR\TEZACAFTOR
     Indication: Cystic fibrosis
     Dosage: 2 TABS(50 MG TEZACAFTOR/75 MG IVACAFTOR/ 100 MG ELEXACAFTOR)ONCE DAILY
     Route: 048
     Dates: start: 20220301, end: 20240210
  2. KALYDECO [Suspect]
     Active Substance: IVACAFTOR
     Indication: Cystic fibrosis
     Dosage: AT NIGHT
     Route: 048
     Dates: start: 20220301, end: 20240210
  3. BUDESONIDE [Concomitant]
     Active Substance: BUDESONIDE
  4. CREON [Concomitant]
     Active Substance: PANCRELIPASE AMYLASE\PANCRELIPASE LIPASE\PANCRELIPASE PROTEASE
  5. FLUTICASONE [Concomitant]
     Active Substance: FLUTICASONE
  6. SODIUM CHLORIDE [Concomitant]
     Active Substance: SODIUM CHLORIDE
  7. STREPTODORNASE [Concomitant]
     Active Substance: STREPTODORNASE
  8. STREPTOKINASE [Concomitant]
     Active Substance: STREPTOKINASE
  9. VITAMIN D [Concomitant]
     Active Substance: VITAMIN D NOS

REACTIONS (5)
  - Intentional overdose [Recovering/Resolving]
  - Intentional self-injury [Recovering/Resolving]
  - Anxiety [Unknown]
  - Social avoidant behaviour [Unknown]
  - Depressed mood [Not Recovered/Not Resolved]

NARRATIVE: CASE EVENT DATE: 20220901
